FAERS Safety Report 21742863 (Version 1)
Quarter: 2022Q4

REPORT INFORMATION
  Report Type: Report from Study
  Country: US (occurrence: US)
  Receive Date: 20221217
  Receipt Date: 20221217
  Transmission Date: 20230112
  Serious: No
  Sender: FDA-Public Use
  Company Number: US-ABBVIE-4234003

PATIENT
  Age: 36 Year
  Sex: Female

DRUGS (6)
  1. RITONAVIR [Suspect]
     Active Substance: RITONAVIR
     Indication: Product used for unknown indication
     Route: 048
  2. RITONAVIR [Suspect]
     Active Substance: RITONAVIR
     Indication: Product used for unknown indication
     Route: 048
  3. EMTRICITABINE\TENOFOVIR DISOPROXIL FUMARATE [Suspect]
     Active Substance: EMTRICITABINE\TENOFOVIR DISOPROXIL FUMARATE
     Indication: Product used for unknown indication
     Route: 048
  4. DARUNAVIR [Suspect]
     Active Substance: DARUNAVIR
     Indication: Product used for unknown indication
     Route: 048
  5. DARUNAVIR [Suspect]
     Active Substance: DARUNAVIR
     Indication: Product used for unknown indication
     Route: 048
  6. DOLUTEGRAVIR [Suspect]
     Active Substance: DOLUTEGRAVIR
     Indication: Product used for unknown indication
     Route: 048

REACTIONS (2)
  - Live birth [Unknown]
  - Maternal exposure during pregnancy [Unknown]
